FAERS Safety Report 8543840-X (Version None)
Quarter: 2012Q3

REPORT INFORMATION
  Report Type: 
  Country: None (occurrence: None)
  Receive Date: 20120727
  Receipt Date: 20120724
  Transmission Date: 20120928
  Serious: Yes (Other)
  Sender: FDA-Public Use
  Company Number: US-TEVA-350188USA

PATIENT
  Sex: Female
  Weight: 43.13 kg

DRUGS (1)
  1. AMPHETAMINE AND DEXTROAMPHETAMINE SALTS [Suspect]

REACTIONS (2)
  - DRUG LEVEL INCREASED [None]
  - DRUG ABUSE [None]
